FAERS Safety Report 20356110 (Version 1)
Quarter: 2022Q1

REPORT INFORMATION
  Report Type: Spontaneous
  Country: US (occurrence: None)
  Receive Date: 20220120
  Receipt Date: 20220120
  Transmission Date: 20220424
  Serious: Yes (Death)
  Sender: FDA-Public Use
  Company Number: None

PATIENT
  Age: 58 Year
  Sex: Female

DRUGS (4)
  1. EVEROLIMUS [Suspect]
     Active Substance: EVEROLIMUS
     Indication: Renal cancer
     Dosage: 5MG ONCE DAILY ORAL?
     Route: 048
     Dates: start: 20211124
  2. EVEROLIMUS [Suspect]
     Active Substance: EVEROLIMUS
     Indication: Metastases to bone
  3. INLYTA [Suspect]
     Active Substance: AXITINIB
     Indication: Renal cancer
     Dosage: 10 MG BID ORAL?
     Route: 048
     Dates: start: 20210615
  4. INLYTA [Suspect]
     Active Substance: AXITINIB
     Indication: Metastases to bone

REACTIONS (1)
  - Death [None]

NARRATIVE: CASE EVENT DATE: 20220112
